FAERS Safety Report 6237175-8 (Version None)
Quarter: 2009Q2

REPORT INFORMATION
  Report Type: 
  Country: None (occurrence: None)
  Receive Date: 20090619
  Receipt Date: 20090610
  Transmission Date: 20091009
  Serious: Yes (Other)
  Sender: FDA-Public Use
  Company Number: US-PFIZER INC-2009225450

PATIENT
  Sex: Female
  Weight: 111.11 kg

DRUGS (14)
  1. RELPAX [Suspect]
     Indication: MIGRAINE
     Dosage: 20 MG, AS NEEDED
     Route: 048
     Dates: start: 20030101
  2. METFORMIN [Suspect]
     Indication: BLOOD TESTOSTERONE ABNORMAL
     Dosage: 500 MG, 2X/DAY
     Route: 048
     Dates: start: 20040101
  3. PRIMIDONE [Suspect]
     Indication: EPILEPSY
     Dosage: 250 MG, THREE OR FOUR TIMES A DAY
     Route: 048
     Dates: start: 20010101
  4. LITHIUM CARBONATE [Suspect]
     Indication: AFFECTIVE DISORDER
     Dosage: 300 MG, 2X/DAY
     Route: 048
     Dates: start: 20040101
  5. WELLBUTRIN XL [Suspect]
     Indication: DEPRESSION
     Dosage: 150 MG, 1X/DAY
     Route: 048
     Dates: start: 20040101
  6. ESTRADIOL [Suspect]
     Indication: HYSTERECTOMY
     Dosage: 2 MG, 2X/DAY
     Route: 048
     Dates: start: 20060101
  7. DICYCLOMINE [Suspect]
     Indication: DYSPEPSIA
     Dosage: 10 MG, 4X/DAY
     Route: 048
     Dates: start: 20070101
  8. PREVACID [Suspect]
     Indication: DYSPEPSIA
     Dosage: 30 MG, 2X/DAY
     Route: 048
     Dates: start: 20030101
  9. BUPROPION [Suspect]
     Indication: SEASONAL AFFECTIVE DISORDER
     Dosage: 75 MG, 1X/DAY
     Route: 048
     Dates: start: 20010101
  10. CLOTRIMAZOLE [Suspect]
     Indication: FUNGAL INFECTION
     Dosage: 1 %, APPLIED TWICE DAILY
     Route: 061
     Dates: start: 20070101
  11. MICONAZOLE NITRATE [Suspect]
     Indication: ONYCHOMYCOSIS
     Dosage: .2 %, APPLIED TWICE DAILY
     Route: 061
     Dates: start: 20080101
  12. ADVAIR HFA [Suspect]
     Indication: BRONCHITIS
     Dosage: ^250/250MG^, 1 PUFF TWICE DAILY
     Route: 055
     Dates: start: 20090201
  13. XOPENEX [Suspect]
     Indication: ASTHMA
     Dosage: 1 PUFF AS NEEDED
     Route: 055
     Dates: start: 20080601
  14. CARAFATE [Suspect]
     Indication: DYSPEPSIA
     Dosage: 1 G, 4X/DAY
     Route: 048
     Dates: start: 20080101

REACTIONS (4)
  - BLINDNESS TRANSIENT [None]
  - DEAFNESS TRANSITORY [None]
  - HYPERACUSIS [None]
  - SWELLING FACE [None]
